FAERS Safety Report 13974367 (Version 1)
Quarter: 2017Q3

REPORT INFORMATION
  Report Type: Spontaneous
  Country: NL (occurrence: NL)
  Receive Date: 20170915
  Receipt Date: 20170915
  Transmission Date: 20171128
  Serious: Yes (Life-Threatening)
  Sender: FDA-Public Use
  Company Number: NL-FRESENIUS KABI-FK201707705

PATIENT
  Age: 71 Year
  Sex: Male

DRUGS (2)
  1. DIPYRIDAMOLE (MANUFACTURER UNKNOWN) [Suspect]
     Active Substance: DIPYRIDAMOLE
     Indication: ANTICOAGULANT THERAPY
     Route: 065
  2. ACETYLSALICYLIC ACID [Suspect]
     Active Substance: ASPIRIN
     Indication: ANTICOAGULANT THERAPY
     Route: 065

REACTIONS (6)
  - Intra-abdominal haemorrhage [Recovered/Resolved]
  - Shock [Recovered/Resolved]
  - Splenic injury [Recovered/Resolved]
  - Product use in unapproved indication [Recovered/Resolved]
  - Peritoneal haematoma [Recovered/Resolved]
  - Condition aggravated [Recovered/Resolved]
